FAERS Safety Report 8672021 (Version 3)
Quarter: 2013Q1

REPORT INFORMATION
  Report Type: Spontaneous
  Country: DE (occurrence: DE)
  Receive Date: 20120719
  Receipt Date: 20130212
  Transmission Date: 20140127
  Serious: Yes (Hospitalization, Other)
  Sender: FDA-Public Use
  Company Number: DE-AMGEN-DEUSP2012043304

PATIENT
  Age: 43 Year
  Sex: Female

DRUGS (6)
  1. ENBREL [Suspect]
     Indication: RHEUMATOID ARTHRITIS
     Dosage: 50 MG, WEEKLY
     Route: 058
     Dates: start: 20110510
  2. QUENSYL [Concomitant]
     Dosage: UNK
  3. VOLTAREN                           /00372301/ [Concomitant]
     Dosage: UNK
  4. METEX                              /00082702/ [Concomitant]
     Dosage: UNK
     Dates: start: 2012
  5. KORTISON [Concomitant]
     Dosage: UNK
  6. ORTHOMOL IMMUN [Concomitant]
     Dosage: UNK

REACTIONS (10)
  - Carpal tunnel syndrome [Not Recovered/Not Resolved]
  - Pain [Not Recovered/Not Resolved]
  - Oropharyngeal pain [Not Recovered/Not Resolved]
  - Drug effect incomplete [Not Recovered/Not Resolved]
  - Impaired healing [Recovered/Resolved]
  - Local swelling [Not Recovered/Not Resolved]
  - Inflammation [Not Recovered/Not Resolved]
  - Scab [Not Recovered/Not Resolved]
  - Menorrhagia [Not Recovered/Not Resolved]
  - Iron deficiency [Unknown]
